FAERS Safety Report 5604119-9 (Version None)
Quarter: 2008Q1

REPORT INFORMATION
  Report Type: 
  Country: None (occurrence: None)
  Receive Date: 20080123
  Receipt Date: 20080116
  Transmission Date: 20080703
  Serious: Yes (Other)
  Sender: FDA-Public Use
  Company Number: 2008S1000015

PATIENT
  Age: 31 Year
  Sex: Female

DRUGS (3)
  1. SORIATANE [Suspect]
     Indication: PSORIASIS
     Dosage: 25 MG;QD;PO, 25 MG;BID;PO
     Route: 048
     Dates: start: 20070101, end: 20070101
  2. SORIATANE [Suspect]
     Indication: PSORIASIS
     Dosage: 25 MG;QD;PO, 25 MG;BID;PO
     Route: 048
     Dates: start: 20070101, end: 20070301
  3. SYNTHROID [Concomitant]

REACTIONS (2)
  - DRUG EXPOSURE BEFORE PREGNANCY [None]
  - PREGNANCY [None]
